FAERS Safety Report 4439865-6 (Version None)
Quarter: 2004Q3

REPORT INFORMATION
  Report Type: 
  Country: None (occurrence: None)
  Receive Date: 20040831
  Receipt Date: 20040819
  Transmission Date: 20050211
  Serious: Yes (Death)
  Sender: FDA-Public Use
  Company Number: 04H-151-0271248-00

PATIENT

DRUGS (2)
  1. NOREPINEPHRINE BITARTRATE [Suspect]
     Indication: CEREBROVASCULAR DISORDER
     Dosage: CONTINUOUS, INTRAVENOUS
     Route: 042
  2. HEPARIN SODIUM [Suspect]
     Dosage: INTRAVENOUS/8 HOURS BEFORE HEMORRHAGIC TRAN

REACTIONS (2)
  - BRAIN HERNIATION [None]
  - HAEMORRHAGE INTRACRANIAL [None]
